FAERS Safety Report 16014091 (Version 10)
Quarter: 2020Q3

REPORT INFORMATION
  Report Type: Spontaneous
  Country: US (occurrence: US)
  Receive Date: 20190227
  Receipt Date: 20200901
  Transmission Date: 20201102
  Serious: Yes (Other)
  Sender: FDA-Public Use
  Company Number: US-PFIZER INC-2019084709

PATIENT
  Age: 69 Year
  Sex: Female
  Weight: 84 kg

DRUGS (5)
  1. IBRANCE [Suspect]
     Active Substance: PALBOCICLIB
     Indication: BREAST CANCER METASTATIC
     Dosage: 100 MG, CYCLIC (21 DAYS ON AND 7 DAYS OFF)
     Route: 048
     Dates: start: 201703
  2. IBRANCE [Suspect]
     Active Substance: PALBOCICLIB
     Dosage: UNK
  3. IBRANCE [Suspect]
     Active Substance: PALBOCICLIB
     Dosage: 75 MG, UNK
  4. IBRANCE [Suspect]
     Active Substance: PALBOCICLIB
     Dosage: UNK
  5. LETROZOLE. [Concomitant]
     Active Substance: LETROZOLE
     Indication: BREAST CANCER METASTATIC
     Dosage: 2.5 MG, DAILY
     Route: 048
     Dates: start: 201703

REACTIONS (12)
  - Hypersensitivity [Unknown]
  - Alopecia [Not Recovered/Not Resolved]
  - Mitral valve prolapse [Unknown]
  - Urinary tract infection [Recovering/Resolving]
  - Diarrhoea [Unknown]
  - Atrial fibrillation [Unknown]
  - Blood pressure decreased [Recovering/Resolving]
  - Platelet count decreased [Not Recovered/Not Resolved]
  - Heart rate increased [Unknown]
  - Blood count abnormal [Unknown]
  - Pain [Unknown]
  - White blood cell count decreased [Unknown]

NARRATIVE: CASE EVENT DATE: 201703
